FAERS Safety Report 4650945-2 (Version None)
Quarter: 2005Q2

REPORT INFORMATION
  Report Type: 
  Country: None (occurrence: None)
  Receive Date: 20050503
  Receipt Date: 20050420
  Transmission Date: 20051028
  Serious: Yes (Other)
  Sender: FDA-Public Use
  Company Number: 2188001

PATIENT
  Sex: Male

DRUGS (1)
  1. SENSODYNE-F [Suspect]
     Indication: DENTAL CLEANING

REACTIONS (1)
  - PROSTATE CANCER [None]
